FAERS Safety Report 4345910-9 (Version None)
Quarter: 2004Q2

REPORT INFORMATION
  Report Type: 
  Country: None (occurrence: None)
  Receive Date: 20040421
  Receipt Date: 20040405
  Transmission Date: 20050107
  Serious: Yes (Hospitalization)
  Sender: FDA-Public Use
  Company Number: 194008

PATIENT
  Age: 63 Year
  Sex: Male
  Weight: 74.3899 kg

DRUGS (4)
  1. AVONEX [Suspect]
     Indication: MULTIPLE SCLEROSIS
     Dosage: 30 MCG QW IM
     Route: 030
     Dates: start: 20031001
  2. LORAZEPAM [Concomitant]
  3. LOTENSIN [Concomitant]
  4. CARDURA [Concomitant]

REACTIONS (4)
  - CONDITION AGGRAVATED [None]
  - DIPLEGIA [None]
  - INFLUENZA LIKE ILLNESS [None]
  - MULTIPLE SCLEROSIS [None]
